FAERS Safety Report 6601171-9 (Version None)
Quarter: 2010Q1

REPORT INFORMATION
  Report Type: 
  Country: None (occurrence: None)
  Receive Date: 20100224
  Receipt Date: 20100224
  Transmission Date: 20100710
  Serious: Yes (Disabling)
  Sender: FDA-Public Use
  Company Number: None

PATIENT
  Age: 83 Year
  Sex: Female
  Weight: 73.0291 kg

DRUGS (1)
  1. LEVAQUIN [Suspect]
     Indication: LOWER RESPIRATORY TRACT INFECTION
     Dosage: 500 MG 1/DAY ORAL
     Route: 048
     Dates: start: 20091019

REACTIONS (2)
  - NAUSEA [None]
  - PAIN IN EXTREMITY [None]
